FAERS Safety Report 8138813-5 (Version None)
Quarter: 2012Q1

REPORT INFORMATION
  Report Type: 
  Country: None (occurrence: None)
  Receive Date: 20120215
  Receipt Date: 20120207
  Transmission Date: 20120608
  Serious: Yes (Congenital Anomaly)
  Sender: FDA-Public Use
  Company Number: GB-PFIZER INC-2012035773

PATIENT
  Sex: Male

DRUGS (7)
  1. THIOGUANINE [Suspect]
     Indication: ACUTE MYELOID LEUKAEMIA
     Dosage: 140 MG DAILY, CYCLIC
     Route: 050
  2. CYTARABINE [Suspect]
     Indication: ACUTE MYELOID LEUKAEMIA
     Dosage: 50 MG, CYCLIC (ON DAYS 1-3)
     Route: 050
  3. CYCLOPHOSPHAMIDE [Suspect]
     Indication: ACUTE MYELOID LEUKAEMIA
     Dosage: 350 MG WEEKLY, CYCLIC
     Route: 050
  4. DAUNORUBICIN HCL [Suspect]
     Indication: ACUTE MYELOID LEUKAEMIA
     Dosage: 100 MG, CYCLIC (ON DAY 7)
     Route: 050
  5. CYTARABINE [Suspect]
     Dosage: 130 MG, CYCLIC (ON DAYS 1-5)
     Route: 050
  6. CYTARABINE [Suspect]
     Dosage: 130 MG, UNK
     Route: 050
     Dates: start: 19730201
  7. DAUNORUBICIN HCL [Suspect]
     Dosage: 90 MG, CYCLIC (ON DAY 1)
     Route: 050

REACTIONS (3)
  - FALLOT'S TETRALOGY [None]
  - SYNDACTYLY [None]
  - EXPOSURE VIA FATHER [None]
